FAERS Safety Report 11862269 (Version 2)
Quarter: 2016Q1

REPORT INFORMATION
  Report Type: Spontaneous
  Country: HU (occurrence: HU)
  Receive Date: 20151222
  Receipt Date: 20160111
  Transmission Date: 20160526
  Serious: Yes (Other)
  Sender: FDA-Public Use
  Company Number: HU-AMGEN-HUNSP2015046106

PATIENT
  Age: 60 Year
  Sex: Female
  Weight: 60 kg

DRUGS (10)
  1. RANITIDIN [Concomitant]
     Active Substance: RANITIDINE HYDROCHLORIDE
     Indication: ANTACID THERAPY
     Dosage: 300 MG, 2X/DAY
  2. LANSACID [Concomitant]
     Indication: ANTACID THERAPY
     Dosage: 30 MG, 1X/DAY
  3. LANSACID [Concomitant]
     Dosage: 30 MG, DAILY
  4. PULMICORT TURBUHALER [Concomitant]
     Active Substance: BUDESONIDE
     Indication: ASTHMA
     Dosage: 100 MG, 2X/DAY
  5. VENETLIN [Concomitant]
     Active Substance: ALBUTEROL SULFATE
     Indication: ASTHMA
     Dosage: AS NEEDED, WEEKLY 1X-2X, STARTED TO YEARS AGO
  6. ENBREL [Suspect]
     Active Substance: ETANERCEPT
     Indication: RHEUMATOID ARTHRITIS
     Dosage: WEEKLY 1X1
     Route: 058
     Dates: start: 2013
  7. BETALOC ZOK PLUS [Concomitant]
     Indication: HEART RATE INCREASED
     Dosage: 50 MG, 1X/DAY
  8. VENTOLIN [Concomitant]
     Active Substance: ALBUTEROL SULFATE
     Indication: ASTHMA
     Dosage: AS NEEDED, WEEKLY 1X-2X, STARTED TO YEARS AGO
  9. FEXOFENADINE [Concomitant]
     Active Substance: FEXOFENADINE\FEXOFENADINE HYDROCHLORIDE
     Indication: HYPERSENSITIVITY
     Dosage: 180 MG, AS NEEDED, 1-2 DAILY
  10. FEXINE [Concomitant]
     Indication: HYPERSENSITIVITY
     Dosage: 180 MG, AS NEEDED, 1-2 DAILY

REACTIONS (6)
  - Injection site pruritus [Not Recovered/Not Resolved]
  - Dermatitis allergic [Not Recovered/Not Resolved]
  - Disease recurrence [Unknown]
  - Injection site erythema [Not Recovered/Not Resolved]
  - Intestinal haemorrhage [Unknown]
  - Influenza [Unknown]

NARRATIVE: CASE EVENT DATE: 2014
